FAERS Safety Report 5323971-8 (Version None)
Quarter: 2007Q2

REPORT INFORMATION
  Report Type: 
  Country: None (occurrence: None)
  Receive Date: 20070514
  Receipt Date: 20070502
  Transmission Date: 20071010
  Serious: Yes (Hospitalization)
  Sender: FDA-Public Use
  Company Number: CM-MERCK-0705USA01132

PATIENT
  Age: 69 Year
  Sex: Male
  Weight: 65 kg

DRUGS (1)
  1. STROMECTOL [Suspect]
     Route: 048
     Dates: start: 20070416, end: 20070416

REACTIONS (5)
  - CHEST PAIN [None]
  - DIARRHOEA [None]
  - EYE PAIN [None]
  - HEADACHE [None]
  - PRURITUS [None]
